FAERS Safety Report 12815485 (Version 1)
Quarter: 2016Q4

REPORT INFORMATION
  Report Type: Spontaneous
  Country: PL (occurrence: PL)
  Receive Date: 20161005
  Receipt Date: 20161005
  Transmission Date: 20170207
  Serious: Yes (Hospitalization)
  Sender: FDA-Public Use
  Company Number: PL-KADMON PHARMACEUTICALS, LLC-KAD201609-003599

PATIENT
  Age: 66 Year
  Sex: Male

DRUGS (2)
  1. RIBAVIRIN. [Suspect]
     Active Substance: RIBAVIRIN
     Indication: CHRONIC HEPATITIS C
     Dosage: TABLET
     Route: 048
     Dates: start: 20160823, end: 20160921
  2. VIEKIRAX [Suspect]
     Active Substance: OMBITASVIR\PARITAPREVIR\RITONAVIR
     Indication: CHRONIC HEPATITIS C
     Dosage: TABLET
     Route: 048
     Dates: start: 20160823, end: 20160921

REACTIONS (7)
  - Hyperglycaemia [Unknown]
  - Pneumonia [Unknown]
  - Pyrexia [Unknown]
  - Malaise [Unknown]
  - Skin lesion [Unknown]
  - Oedema peripheral [Unknown]
  - Yellow skin [Unknown]

NARRATIVE: CASE EVENT DATE: 201609
